FAERS Safety Report 7771656-0 (Version None)
Quarter: 2011Q3

REPORT INFORMATION
  Report Type: 
  Country: None (occurrence: None)
  Receive Date: 20110922
  Receipt Date: 20100115
  Transmission Date: 20111222
  Serious: No
  Sender: FDA-Public Use
  Company Number: US-ASTRAZENECA-2006UW22645

PATIENT
  Age: 37 Year
  Sex: Female
  Weight: 113.4 kg

DRUGS (10)
  1. SEROQUEL [Suspect]
     Indication: PSYCHOTIC BEHAVIOUR
     Dosage: 25 MG TO 1000 MG
     Route: 048
     Dates: start: 20030320
  2. SEROQUEL [Suspect]
     Indication: BIPOLAR DISORDER
     Dosage: 25 MG TO 1000 MG
     Route: 048
     Dates: start: 20030320
  3. SEROQUEL [Suspect]
     Indication: POST-TRAUMATIC STRESS DISORDER
     Dosage: 25 MG TO 1000 MG
     Route: 048
     Dates: start: 20030320
  4. SEROQUEL [Suspect]
     Dosage: 100MG TWO TIMES A DAY AND 800MG AT NIGHT
     Route: 048
     Dates: start: 20030101
  5. SEROQUEL [Suspect]
     Dosage: 100MG TWO TIMES A DAY AND 800MG AT NIGHT
     Route: 048
     Dates: start: 20030101
  6. SEROQUEL [Suspect]
     Indication: ANGER
     Dosage: 25 MG TO 1000 MG
     Route: 048
     Dates: start: 20030320
  7. SEROQUEL [Suspect]
     Indication: DEPRESSION
     Dosage: 25 MG TO 1000 MG
     Route: 048
     Dates: start: 20030320
  8. SEROQUEL [Suspect]
     Dosage: 100MG TWO TIMES A DAY AND 800MG AT NIGHT
     Route: 048
     Dates: start: 20030101
  9. SEROQUEL [Suspect]
     Dosage: 100MG TWO TIMES A DAY AND 800MG AT NIGHT
     Route: 048
     Dates: start: 20030101
  10. SEROQUEL [Suspect]
     Dosage: 100MG TWO TIMES A DAY AND 800MG AT NIGHT
     Route: 048
     Dates: start: 20030101

REACTIONS (2)
  - OBESITY [None]
  - TYPE 2 DIABETES MELLITUS [None]
